FAERS Safety Report 18517889 (Version 1)
Quarter: 2020Q4

REPORT INFORMATION
  Report Type: Spontaneous
  Country: US (occurrence: US)
  Receive Date: 20201118
  Receipt Date: 20201118
  Transmission Date: 20210114
  Serious: No
  Sender: FDA-Public Use
  Company Number: US-LUPIN PHARMACEUTICALS INC.-2020-03958

PATIENT
  Sex: Male

DRUGS (1)
  1. SERTRALINE HYDROCHLORIDE TABLETS USP, 25 MG [Suspect]
     Active Substance: SERTRALINE HYDROCHLORIDE
     Indication: PRODUCT USED FOR UNKNOWN INDICATION
     Dosage: 1 DOSAGE FORM, QD
     Route: 063

REACTIONS (5)
  - Gastrooesophageal reflux disease [Unknown]
  - Condition aggravated [Unknown]
  - Weight gain poor [Unknown]
  - Exposure via breast milk [Unknown]
  - Hypersensitivity [Unknown]
